FAERS Safety Report 8985065 (Version 1)
Quarter: 2012Q4

REPORT INFORMATION
  Report Type: 
  Country: FR (occurrence: FR)
  Receive Date: 20121226
  Receipt Date: 20121226
  Transmission Date: 20130627
  Serious: Yes (Hospitalization)
  Sender: FDA-Public Use
  Company Number: FR-BRISTOL-MYERS SQUIBB COMPANY-17222431

PATIENT
  Age: 25 Year

DRUGS (1)
  1. ABILIFY TABS [Suspect]

REACTIONS (1)
  - Pulmonary embolism [Recovered/Resolved]
